FAERS Safety Report 9957729 (Version 3)
Quarter: 2014Q1

REPORT INFORMATION
  Report Type: Spontaneous
  Country: IT (occurrence: IT)
  Receive Date: 20140304
  Receipt Date: 20140327
  Transmission Date: 20141002
  Serious: Yes (Hospitalization)
  Sender: FDA-Public Use
  Company Number: IT-ASTRAZENECA-2014SE13175

PATIENT
  Age: 31726 Day
  Sex: Female

DRUGS (9)
  1. SEROQUEL [Suspect]
     Indication: SEDATION
     Route: 048
     Dates: start: 20140122, end: 20140124
  2. SEROQUEL [Suspect]
     Indication: SEDATION
     Route: 048
  3. TEGRETOL [Suspect]
     Indication: SEDATION
     Route: 048
     Dates: start: 20140122, end: 20140124
  4. TEGRETOL [Suspect]
     Indication: SEDATION
     Dosage: 200+330/DAILY
     Route: 065
  5. TEGRETOL [Suspect]
     Indication: SEDATION
     Dosage: INCREASED DOSAGE
     Route: 065
  6. GABAPENTIN [Suspect]
     Indication: SEDATION
     Route: 048
     Dates: start: 20140122, end: 20140124
  7. GABAPENTIN [Suspect]
     Indication: SEDATION
     Route: 065
  8. ASA [Concomitant]
     Indication: ATRIAL FIBRILLATION
     Route: 048
  9. PLAVIX [Concomitant]
     Indication: ATRIAL FIBRILLATION
     Route: 048

REACTIONS (3)
  - Altered state of consciousness [Recovering/Resolving]
  - Sopor [Recovering/Resolving]
  - Off label use [Recovering/Resolving]
